FAERS Safety Report 4767709-1 (Version None)
Quarter: 2005Q3

REPORT INFORMATION
  Report Type: 
  Country: None (occurrence: None)
  Receive Date: 20050912
  Receipt Date: 20050830
  Transmission Date: 20060218
  Serious: Yes (Hospitalization)
  Sender: FDA-Public Use
  Company Number: 033-9

PATIENT
  Age: 63 Year
  Sex: Male

DRUGS (4)
  1. TEVETEN HCT [Suspect]
     Indication: HYPERTENSION
     Dosage: 1 TABLET (S) QD PO
     Route: 048
     Dates: start: 20050601, end: 20050602
  2. LANOXIN [Concomitant]
  3. METOPROLOL [Concomitant]
  4. GEMFIBROZIL [Concomitant]

REACTIONS (1)
  - MYOCARDIAL INFARCTION [None]
